FAERS Safety Report 12758266 (Version 2)
Quarter: 2016Q4

REPORT INFORMATION
  Report Type: Report from Study
  Country: US (occurrence: US)
  Receive Date: 20160919
  Receipt Date: 20161107
  Transmission Date: 20170207
  Serious: Yes (Other)
  Sender: FDA-Public Use
  Company Number: US-GLAXOSMITHKLINE-US2016GSK135946

PATIENT
  Sex: Female

DRUGS (2)
  1. BELIMUMAB [Suspect]
     Active Substance: BELIMUMAB
     Indication: SYSTEMIC LUPUS ERYTHEMATOSUS
     Dosage: UNK, CYC
     Dates: start: 20160708
  2. METHOTREXATE. [Suspect]
     Active Substance: METHOTREXATE

REACTIONS (4)
  - Drug ineffective [Unknown]
  - Systemic lupus erythematosus [Unknown]
  - Liver function test increased [Unknown]
  - Abdominal pain [Unknown]
